FAERS Safety Report 8922455 (Version 2)
Quarter: 2012Q4

REPORT INFORMATION
  Report Type: 
  Country: BE (occurrence: BE)
  Receive Date: 20121126
  Receipt Date: 20121210
  Transmission Date: 20130627
  Serious: Yes (Life-Threatening, Hospitalization)
  Sender: FDA-Public Use
  Company Number: BE-JNJFOC-20121109181

PATIENT
  Age: 43 Year
  Sex: Male

DRUGS (1)
  1. ZALDIAR [Suspect]
     Indication: BACK PAIN
     Route: 048
     Dates: start: 20121024, end: 20121029

REACTIONS (1)
  - Thrombocytopenia [Unknown]
